FAERS Safety Report 4778818-5 (Version None)
Quarter: 2005Q3

REPORT INFORMATION
  Report Type: 
  Country: None (occurrence: None)
  Receive Date: 20050922
  Receipt Date: 20050908
  Transmission Date: 20060218
  Serious: Yes (Hospitalization)
  Sender: FDA-Public Use
  Company Number: S05-NOR-03396-01

PATIENT
  Age: 25 Year
  Sex: Male

DRUGS (5)
  1. CIPRALEX (ESCITALOPRAM) [Suspect]
     Indication: DEPRESSION
     Dosage: 5 MG QD PO
     Route: 048
     Dates: start: 20050805, end: 20050817
  2. CIPRALEX (ESCITALOPRAM) [Suspect]
     Indication: DEPRESSION
     Dosage: 20 MG QD PO
     Route: 048
     Dates: start: 20050818, end: 20050825
  3. OXAZEPAM [Concomitant]
  4. VALLERGRAN (ALIMEMAZINE TARTRATE) (ALIMEMAZINE TARTRATE) [Concomitant]
  5. ZOPICLON (ZOPICLONE) [Concomitant]

REACTIONS (1)
  - CONVULSION [None]
